FAERS Safety Report 17394478 (Version 20)
Quarter: 2023Q1

REPORT INFORMATION
  Report Type: Spontaneous
  Country: GB (occurrence: GB)
  Receive Date: 20200210
  Receipt Date: 20230225
  Transmission Date: 20230418
  Serious: Yes (Life-Threatening, Hospitalization, Other)
  Sender: FDA-Public Use
  Company Number: GB-AMGEN-GBRSP2020019418

PATIENT
  Age: 45 Year
  Sex: Female
  Weight: 80 kg

DRUGS (85)
  1. TRASTUZUMAB [Suspect]
     Active Substance: TRASTUZUMAB
     Indication: Breast cancer metastatic
     Dosage: 483 MILLIGRAM, QD, LOADING DOSE
     Route: 042
     Dates: start: 20150803, end: 20150803
  2. TRASTUZUMAB [Suspect]
     Active Substance: TRASTUZUMAB
     Dosage: 600 MILLIGRAM, Q3WK
     Route: 042
     Dates: start: 20151217, end: 20160308
  3. TRASTUZUMAB [Suspect]
     Active Substance: TRASTUZUMAB
     Dosage: 600 MILLIGRAM, Q3WK
     Route: 042
     Dates: start: 20160623
  4. TRASTUZUMAB [Suspect]
     Active Substance: TRASTUZUMAB
     Dosage: 600 MILLIGRAM, Q3WK, MAINTAINANCE DOSE
     Route: 058
     Dates: start: 20150825, end: 20151117
  5. TRASTUZUMAB [Suspect]
     Active Substance: TRASTUZUMAB
     Dosage: 600 MILLIGRAM, Q3WK LOADING DOSE
     Route: 058
     Dates: start: 20160308, end: 20160308
  6. TRASTUZUMAB [Suspect]
     Active Substance: TRASTUZUMAB
     Dosage: 600 MILLIGRAM, Q3WK LOADING DOSE
     Route: 058
     Dates: start: 20160723
  7. TRASTUZUMAB [Suspect]
     Active Substance: TRASTUZUMAB
     Dosage: 600 MILLIGRAM, QD, LOADING DOSE
     Route: 042
     Dates: start: 20151217, end: 20160308
  8. TRASTUZUMAB [Suspect]
     Active Substance: TRASTUZUMAB
     Dosage: 1800 MILLIGRAM, Q3WK
     Route: 065
     Dates: start: 20160623
  9. TRASTUZUMAB [Suspect]
     Active Substance: TRASTUZUMAB
     Dosage: 483 MILLIGRAM, Q3WK
     Route: 065
     Dates: start: 20150803, end: 20150803
  10. TRASTUZUMAB [Suspect]
     Active Substance: TRASTUZUMAB
     Dosage: 1800 MILLIGRAM, QWK
     Route: 065
     Dates: start: 20160623
  11. TRASTUZUMAB [Suspect]
     Active Substance: TRASTUZUMAB
     Dosage: 1800 MILLIGRAM, QWK
     Route: 065
     Dates: start: 20160723
  12. DOCETAXEL [Suspect]
     Active Substance: DOCETAXEL
     Indication: Breast cancer metastatic
     Dosage: 120 MILLIGRAM, Q3WK
     Route: 042
     Dates: start: 20150804, end: 20151117
  13. DOCETAXEL [Suspect]
     Active Substance: DOCETAXEL
     Dosage: 120 MILLIGRAM, Q3WK
     Route: 042
     Dates: start: 20150804
  14. DOCETAXEL [Suspect]
     Active Substance: DOCETAXEL
     Dosage: 600 MILLIGRAM, Q3WK
     Route: 042
     Dates: start: 20151217, end: 20160308
  15. DOCETAXEL [Suspect]
     Active Substance: DOCETAXEL
     Dosage: 120 MILLIGRAM, Q3WK
     Route: 042
     Dates: start: 20150814, end: 20151117
  16. DOCETAXEL [Suspect]
     Active Substance: DOCETAXEL
     Dosage: 120 MILLIGRAM, Q3WK
     Route: 042
     Dates: start: 20150808, end: 20151117
  17. DOCETAXEL [Suspect]
     Active Substance: DOCETAXEL
     Dosage: 600 MILLIGRAM, Q3WK
     Route: 042
     Dates: start: 20150217, end: 20160308
  18. DOCETAXEL [Suspect]
     Active Substance: DOCETAXEL
     Dosage: 120 MILLIGRAM
     Route: 065
     Dates: start: 20150808
  19. PERTUZUMAB [Suspect]
     Active Substance: PERTUZUMAB
     Indication: Breast cancer metastatic
     Dosage: 840 MG, UNK ONE CYCLE (LOADING DOSE)
     Route: 042
     Dates: start: 20150804, end: 20150804
  20. PERTUZUMAB [Suspect]
     Active Substance: PERTUZUMAB
     Dosage: 840 MG, 1X (LOADING DOSE)
     Route: 042
     Dates: start: 20160623, end: 20160623
  21. PERTUZUMAB [Suspect]
     Active Substance: PERTUZUMAB
     Dosage: 420 MG, QD MAINTENANCE DOSE
     Route: 042
     Dates: start: 20160715
  22. PERTUZUMAB [Suspect]
     Active Substance: PERTUZUMAB
     Dosage: 420 MG, Q3W MAINTAINANCE DOSE
     Route: 042
     Dates: start: 20151217, end: 20160308
  23. PERTUZUMAB [Suspect]
     Active Substance: PERTUZUMAB
     Dosage: 420 MG, Q3W MAINTAINANCE DOSE
     Route: 042
     Dates: start: 20150825, end: 20151117
  24. PERTUZUMAB [Suspect]
     Active Substance: PERTUZUMAB
     Dosage: 420 MG, QD MAINTENANCE DOSE
     Route: 042
     Dates: start: 20160715
  25. PERTUZUMAB [Suspect]
     Active Substance: PERTUZUMAB
     Dosage: 420 MG, QD MAINTENANCE DOSE
     Route: 042
     Dates: start: 20151217, end: 20160308
  26. PERTUZUMAB [Suspect]
     Active Substance: PERTUZUMAB
     Dosage: 600 MILLIGRAM, QD
     Route: 065
     Dates: start: 20151217, end: 20160308
  27. AROMASIN [Suspect]
     Active Substance: EXEMESTANE
     Indication: Product used for unknown indication
     Dosage: 25 MILLIGRAM, QD
     Route: 048
  28. HYALURONIDASE (HUMAN RECOMBINANT)\TRASTUZUMAB [Suspect]
     Active Substance: HYALURONIDASE (HUMAN RECOMBINANT)\TRASTUZUMAB
     Indication: Breast cancer metastatic
     Dosage: 600 MILLIGRAM, Q3WK
     Route: 058
     Dates: start: 20150825, end: 20151117
  29. HYALURONIDASE (HUMAN RECOMBINANT)\TRASTUZUMAB [Suspect]
     Active Substance: HYALURONIDASE (HUMAN RECOMBINANT)\TRASTUZUMAB
     Dosage: 600 MILLIGRAM, Q3WK
     Route: 058
     Dates: start: 20160308, end: 20160308
  30. HYALURONIDASE (HUMAN RECOMBINANT)\TRASTUZUMAB [Suspect]
     Active Substance: HYALURONIDASE (HUMAN RECOMBINANT)\TRASTUZUMAB
     Dosage: 600 MILLIGRAM, Q3WK
     Route: 058
     Dates: start: 20160723
  31. EXEMESTANE [Suspect]
     Active Substance: EXEMESTANE
     Indication: Breast cancer metastatic
     Dosage: 25 MG, QD
     Route: 048
     Dates: start: 20150518
  32. EXEMESTANE [Suspect]
     Active Substance: EXEMESTANE
     Indication: Metastases to bone
     Dosage: 25 MILLIGRAM, QD
     Route: 048
  33. EXEMESTANE [Suspect]
     Active Substance: EXEMESTANE
     Dosage: 600 MILLIGRAM, Q3WK
     Route: 065
     Dates: start: 20160723
  34. HYALURONIDASE (HUMAN RECOMBINANT) [Suspect]
     Active Substance: HYALURONIDASE (HUMAN RECOMBINANT)
     Indication: Breast cancer metastatic
     Dosage: 600 MILLIGRAM, Q3WK
     Route: 058
     Dates: start: 20160623
  35. HYALURONIDASE (HUMAN RECOMBINANT) [Suspect]
     Active Substance: HYALURONIDASE (HUMAN RECOMBINANT)
     Dosage: 3000 MILLIGRAM
     Route: 065
  36. HYALURONIDASE (HUMAN RECOMBINANT) [Suspect]
     Active Substance: HYALURONIDASE (HUMAN RECOMBINANT)
     Dosage: 600 MILLIGRAM, Q3WK
     Route: 065
     Dates: start: 20160308, end: 20160308
  37. HYALURONIDASE (HUMAN RECOMBINANT) [Suspect]
     Active Substance: HYALURONIDASE (HUMAN RECOMBINANT)
     Dosage: 600 MILLIGRAM, Q2WK
     Route: 058
     Dates: start: 20160623
  38. HYALURONIDASE (HUMAN RECOMBINANT) [Suspect]
     Active Substance: HYALURONIDASE (HUMAN RECOMBINANT)
     Dosage: 600 MILLIGRAM, Q3WK
     Route: 058
     Dates: start: 20150825, end: 20151117
  39. TAXOTERE [Suspect]
     Active Substance: DOCETAXEL
     Indication: Breast cancer metastatic
     Dosage: 360 MILLIGRAM
     Route: 065
     Dates: start: 20150814, end: 20151117
  40. SODIUM HYALURONATE [Suspect]
     Active Substance: HYALURONATE SODIUM
     Indication: Product used for unknown indication
     Dosage: 600 MILLIGRAM, Q3WK
     Route: 065
     Dates: start: 20150825, end: 20151117
  41. SODIUM HYALURONATE [Suspect]
     Active Substance: HYALURONATE SODIUM
     Dosage: UNK, QD
     Route: 065
     Dates: start: 20160308, end: 20160308
  42. SODIUM HYALURONATE [Suspect]
     Active Substance: HYALURONATE SODIUM
     Dosage: 600 MILLIGRAM, Q3WK
     Route: 065
     Dates: start: 20160523
  43. IBANDRONATE SODIUM [Suspect]
     Active Substance: IBANDRONATE SODIUM
     Indication: Metastases to bone
     Dosage: 50 MILLIGRAM
     Route: 048
     Dates: start: 20150518
  44. SYNVISC [Suspect]
     Active Substance: HYLAN G-F 20
     Indication: Product used for unknown indication
     Dosage: UNK
     Route: 065
  45. PIPERACILLIN SODIUM\TAZOBACTAM SODIUM [Concomitant]
     Active Substance: PIPERACILLIN SODIUM\TAZOBACTAM SODIUM
     Indication: Device related infection
     Dosage: 600 MILLIGRAM, Q3WK
     Route: 058
     Dates: start: 20151130, end: 20151209
  46. PIPERACILLIN SODIUM\TAZOBACTAM SODIUM [Concomitant]
     Active Substance: PIPERACILLIN SODIUM\TAZOBACTAM SODIUM
     Dosage: 600 MILLIGRAM, Q3WK
     Route: 058
     Dates: start: 20160723
  47. PIPERACILLIN SODIUM\TAZOBACTAM SODIUM [Concomitant]
     Active Substance: PIPERACILLIN SODIUM\TAZOBACTAM SODIUM
     Dosage: 600 MILLIGRAM, Q3WK
     Route: 065
     Dates: start: 20151130, end: 20151209
  48. PIPERACILLIN SODIUM\TAZOBACTAM SODIUM [Concomitant]
     Active Substance: PIPERACILLIN SODIUM\TAZOBACTAM SODIUM
     Dosage: 600 MILLIGRAM, QD
     Route: 040
     Dates: start: 20160723
  49. XGEVA [Concomitant]
     Active Substance: DENOSUMAB
     Indication: Product used for unknown indication
     Dosage: 120 MILLIGRAM, QMO
     Route: 058
     Dates: start: 20160127, end: 201802
  50. XGEVA [Concomitant]
     Active Substance: DENOSUMAB
     Dosage: 8 MILLIGRAM 3 DAYS EVERY 3 WEEKS
     Route: 058
     Dates: start: 20150803
  51. XGEVA [Concomitant]
     Active Substance: DENOSUMAB
     Dosage: 24 MILLIGRAM, EVERY 3 DAYS
     Route: 058
     Dates: start: 20150803
  52. XGEVA [Concomitant]
     Active Substance: DENOSUMAB
     Dosage: UNK UNK, Q3WK
     Route: 058
     Dates: start: 20150803
  53. XGEVA [Concomitant]
     Active Substance: DENOSUMAB
     Dosage: 1 EVERY 3 WEEKS; 3 DAYS 2 WEEKS
     Route: 065
     Dates: start: 20150803
  54. AMOXICILLIN\CLAVULANATE POTASSIUM [Concomitant]
     Active Substance: AMOXICILLIN\CLAVULANATE POTASSIUM
     Indication: Vascular device infection
     Dosage: 625 MILLIGRAM, TID
     Route: 048
     Dates: start: 20160915
  55. AMOXICILLIN\CLAVULANATE POTASSIUM [Concomitant]
     Active Substance: AMOXICILLIN\CLAVULANATE POTASSIUM
     Dosage: 1875 MILLIGRAM, Q8H
     Route: 048
     Dates: start: 20160915
  56. AMOXICILLIN\CLAVULANATE POTASSIUM [Concomitant]
     Active Substance: AMOXICILLIN\CLAVULANATE POTASSIUM
     Dosage: 120 MILLIGRAM
     Route: 058
     Dates: start: 20160127
  57. BISOPROLOL [Concomitant]
     Active Substance: BISOPROLOL
     Indication: Product used for unknown indication
     Dosage: 1000 MILLIGRAM, QD
     Route: 048
     Dates: start: 20160908
  58. RAMIPRIL [Concomitant]
     Active Substance: RAMIPRIL
     Indication: Ejection fraction decreased
     Dosage: 10 MILLIGRAM
     Route: 048
     Dates: start: 201603
  59. ACETAMINOPHEN [Concomitant]
     Active Substance: ACETAMINOPHEN
     Indication: Device related infection
     Dosage: 500 MILLIGRAM, QID
     Route: 048
     Dates: start: 20141211, end: 20141224
  60. ACETAMINOPHEN [Concomitant]
     Active Substance: ACETAMINOPHEN
     Indication: Device related infection
     Dosage: 4 GRAM, QD
     Route: 048
     Dates: start: 20160916
  61. ACETAMINOPHEN [Concomitant]
     Active Substance: ACETAMINOPHEN
     Dosage: 1 GRAM, QID
  62. ACETAMINOPHEN [Concomitant]
     Active Substance: ACETAMINOPHEN
     Dosage: 2000 MILLIGRAM, QD
     Dates: start: 20141211, end: 20141224
  63. ACETAMINOPHEN [Concomitant]
     Active Substance: ACETAMINOPHEN
     Dosage: 28000 MILLIGRAM
  64. ACETAMINOPHEN [Concomitant]
     Active Substance: ACETAMINOPHEN
     Dosage: 1 GRAM, Q8H
     Route: 040
  65. CIPROFLOXACIN [Concomitant]
     Active Substance: CIPROFLOXACIN
     Indication: Device related infection
     Dosage: 500 MILLIGRAM, BID
     Route: 048
     Dates: start: 20160908
  66. CIPROFLOXACIN [Concomitant]
     Active Substance: CIPROFLOXACIN
     Indication: Vascular device infection
     Dosage: 500 MILLIGRAM, BID
     Route: 048
     Dates: start: 20151210, end: 20151215
  67. CIPROFLOXACIN [Concomitant]
     Active Substance: CIPROFLOXACIN
     Dosage: 1000 MG, 1X/DAY
     Route: 048
     Dates: start: 20151210, end: 20151215
  68. CIPROFLOXACIN [Concomitant]
     Active Substance: CIPROFLOXACIN
     Dosage: 1000 MG
     Route: 048
     Dates: start: 20150908
  69. CIPROFLOXACIN [Concomitant]
     Active Substance: CIPROFLOXACIN
     Dosage: 8 MILLIGRAM
     Route: 065
     Dates: start: 20150803
  70. MEROPENEM [Concomitant]
     Active Substance: MEROPENEM
     Indication: Device related infection
     Dosage: 3 G, 1X/DAY
     Route: 042
     Dates: start: 20160918
  71. MEROPENEM [Concomitant]
     Active Substance: MEROPENEM
     Dosage: 3 G, 1X/DAY
     Route: 042
     Dates: start: 20160918
  72. MEROPENEM [Concomitant]
     Active Substance: MEROPENEM
     Dosage: 2000 MILLIGRAM, QD
     Dates: start: 20141211, end: 20141224
  73. GENTAMICIN [Concomitant]
     Active Substance: GENTAMICIN
     Indication: Device related infection
     Dosage: UNK
     Dates: start: 20151130, end: 20151209
  74. BENZYDAMINE HYDROCHLORIDE [Concomitant]
     Active Substance: BENZYDAMINE HYDROCHLORIDE
     Indication: Gingival swelling
     Dosage: 15 MILLIGRAM, QID
     Route: 048
     Dates: start: 20150308, end: 20150817
  75. BENZYDAMINE HYDROCHLORIDE [Concomitant]
     Active Substance: BENZYDAMINE HYDROCHLORIDE
     Indication: Mucosal inflammation
     Dosage: 15 MILLIGRAM, QID
     Route: 048
     Dates: start: 201508
  76. BENZYDAMINE HYDROCHLORIDE [Concomitant]
     Active Substance: BENZYDAMINE HYDROCHLORIDE
     Indication: Metastases to bone
     Dosage: 60 ML, QD
     Dates: start: 20150803, end: 20150817
  77. BENZYDAMINE HYDROCHLORIDE [Concomitant]
     Active Substance: BENZYDAMINE HYDROCHLORIDE
     Dosage: 15 MG, QID
     Dates: start: 20150308, end: 20150817
  78. BENZYDAMINE HYDROCHLORIDE [Concomitant]
     Active Substance: BENZYDAMINE HYDROCHLORIDE
     Dosage: 15 MG, QID
     Dates: start: 201508
  79. BENZYDAMINE HYDROCHLORIDE [Concomitant]
     Active Substance: BENZYDAMINE HYDROCHLORIDE
     Dosage: 50 MILLIGRAM, QD
     Route: 065
     Dates: start: 20150518
  80. BENZYDAMINE HYDROCHLORIDE [Concomitant]
     Active Substance: BENZYDAMINE HYDROCHLORIDE
     Dosage: 15 ML, 2X/DAY
     Route: 048
     Dates: start: 20150308, end: 20150817
  81. DEXAMETHASONE [Concomitant]
     Active Substance: DEXAMETHASONE
     Indication: Product used for unknown indication
     Dosage: 8 MILLIGRAM, Q3WK, FOR 3 DAYS EVERY 3 WEEKS
     Route: 048
     Dates: start: 20150803
  82. IRON [Concomitant]
     Active Substance: IRON
     Indication: Serum ferritin decreased
     Dosage: 3 GRAM, QD
     Route: 042
     Dates: start: 20160918
  83. IRON [Concomitant]
     Active Substance: IRON
     Dosage: UNK
     Route: 048
  84. CALCIUM [Concomitant]
     Active Substance: CALCIUM
     Dosage: UNK
  85. BENZYDAMINE HYDROCHLORIDE [Concomitant]
     Active Substance: BENZYDAMINE HYDROCHLORIDE
     Indication: Product used for unknown indication
     Dosage: 15 MILLIGRAM, QD
     Dates: start: 20150308, end: 20150817

REACTIONS (3)
  - Ejection fraction decreased [Recovered/Resolved]
  - Ejection fraction decreased [Recovered/Resolved]
  - Off label use [Unknown]

NARRATIVE: CASE EVENT DATE: 20180717
